FAERS Safety Report 9370733 (Version 1)
Quarter: 2013Q2

REPORT INFORMATION
  Report Type: Spontaneous
  Country: CA (occurrence: CA)
  Receive Date: 20130626
  Receipt Date: 20130626
  Transmission Date: 20140414
  Serious: Yes (Death)
  Sender: FDA-Public Use
  Company Number: CA-TEVA-415266USA

PATIENT
  Age: 61 Year
  Sex: Male
  Weight: 87 kg

DRUGS (11)
  1. DOXEPIN [Suspect]
     Route: 065
  2. SERTRALINE [Suspect]
     Route: 065
  3. DIAZEPAM [Concomitant]
  4. HYDROCHLOROTHIAZIDE [Concomitant]
  5. LORAZEPAM [Concomitant]
  6. MAVIK [Concomitant]
  7. METFORMIN [Concomitant]
  8. METHYLPHENIDATE [Concomitant]
  9. NAPROXEN [Concomitant]
  10. RISPERIDONE [Concomitant]
  11. TYLENOL WITH CODEINE NO. 3-TAB [Concomitant]

REACTIONS (3)
  - Antidepressant drug level increased [Fatal]
  - Overdose [Fatal]
  - Toxicity to various agents [Fatal]
